FAERS Safety Report 7103049-3 (Version None)
Quarter: 2010Q4

REPORT INFORMATION
  Report Type: 
  Country: None (occurrence: None)
  Receive Date: 20101115
  Receipt Date: 20101104
  Transmission Date: 20110411
  Serious: Yes (Hospitalization)
  Sender: FDA-Public Use
  Company Number: CH-ASTRAZENECA-2010SE52908

PATIENT
  Age: 15 Year
  Sex: Male

DRUGS (5)
  1. SEROQUEL [Suspect]
     Indication: DEPRESSION
     Route: 048
     Dates: start: 20100915
  2. CEREZYME [Suspect]
     Indication: METABOLIC DISORDER
     Route: 041
     Dates: start: 20060101
  3. CEREZYME [Suspect]
     Route: 041
     Dates: start: 20090301
  4. CEREZYME [Suspect]
     Route: 041
     Dates: start: 20091001, end: 20100601
  5. CEREZYME [Suspect]
     Route: 041

REACTIONS (4)
  - AGGRESSION [None]
  - NERVOUSNESS [None]
  - PERSONALITY DISORDER [None]
  - PROTHROMBIN TIME RATIO DECREASED [None]
